FAERS Safety Report 5091622-6 (Version None)
Quarter: 2006Q3

REPORT INFORMATION
  Report Type: 
  Country: None (occurrence: None)
  Receive Date: 20060824
  Receipt Date: 20060811
  Transmission Date: 20061208
  Serious: Yes (Hospitalization)
  Sender: FDA-Public Use
  Company Number: 2006082782

PATIENT
  Age: 3 Year
  Sex: Male
  Weight: 14.2 kg

DRUGS (4)
  1. AZITHROMYCIN [Suspect]
     Indication: PNEUMONIA MYCOPLASMAL
     Dosage: ORAL
     Route: 048
     Dates: start: 20060619, end: 20060621
  2. TOMIRON (CEFTERAM PIVOXIL) [Concomitant]
  3. ONON (PRANLUKAST) [Concomitant]
  4. UNASYN [Concomitant]

REACTIONS (11)
  - ASPARTATE AMINOTRANSFERASE INCREASED [None]
  - ASTHENIA [None]
  - BLOOD CREATINE PHOSPHOKINASE INCREASED [None]
  - BLOOD CREATINE PHOSPHOKINASE MB INCREASED [None]
  - BLOOD LACTATE DEHYDROGENASE INCREASED [None]
  - GAIT DISTURBANCE [None]
  - IMMOBILE [None]
  - MYOSITIS [None]
  - PLATELET COUNT DECREASED [None]
  - PNEUMONIA [None]
  - WHITE BLOOD CELL COUNT DECREASED [None]
